FAERS Safety Report 8191759-9 (Version None)
Quarter: 2012Q1

REPORT INFORMATION
  Report Type: 
  Country: None (occurrence: None)
  Receive Date: 20120307
  Receipt Date: 20120305
  Transmission Date: 20120608
  Serious: Yes (Death, Life-Threatening, Hospitalization)
  Sender: FDA-Public Use
  Company Number: AU-B.I. PHARMACEUTICALS,INC./RIDGEFIELD-2011-AU-02058AU

PATIENT
  Sex: Male
  Weight: 74 kg

DRUGS (13)
  1. LIPITOR [Concomitant]
     Dosage: 40 MG
     Dates: start: 20101001, end: 20111101
  2. SPIRIVA [Concomitant]
     Dosage: 18 MCG
  3. SYMBICORT [Concomitant]
  4. PRADAXA [Suspect]
     Indication: CEREBROVASCULAR ACCIDENT PROPHYLAXIS
     Dosage: 300 MG
     Dates: start: 20110822, end: 20111101
  5. LYRICA [Concomitant]
     Dosage: 150 MG
  6. BUPRENORPHINE [Concomitant]
     Dosage: 1.4286 MG
     Dates: start: 20101001, end: 20111101
  7. AMIODARONE HCL [Concomitant]
     Dosage: 100 MG
     Dates: start: 20110303, end: 20111101
  8. ATROVENT [Concomitant]
  9. PANTOPRAZOLE [Concomitant]
     Dosage: 40 MG
  10. PRADAXA [Suspect]
     Indication: ATRIAL FIBRILLATION
  11. LASIX [Concomitant]
     Dosage: 40 MG
     Dates: start: 20080101, end: 20110101
  12. SLOW-K [Concomitant]
     Dates: start: 20080101, end: 20111101
  13. ACETAMINOPHEN W/ CODEINE [Concomitant]

REACTIONS (7)
  - SEPSIS [None]
  - MALNUTRITION [None]
  - RENAL FAILURE ACUTE [None]
  - GASTROINTESTINAL HAEMORRHAGE [None]
  - MELAENA [None]
  - LOBAR PNEUMONIA [None]
  - FALL [None]
